FAERS Safety Report 5722324-8 (Version None)
Quarter: 2008Q2

REPORT INFORMATION
  Report Type: 
  Country: None (occurrence: None)
  Receive Date: 20080429
  Receipt Date: 20070719
  Transmission Date: 20081010
  Serious: No
  Sender: FDA-Public Use
  Company Number: US-ASTRAZENECA-2007UW17134

PATIENT
  Age: 80 Year
  Sex: Female
  Weight: 70.3 kg

DRUGS (10)
  1. NEXIUM [Suspect]
     Indication: GASTROOESOPHAGEAL REFLUX DISEASE
     Route: 048
     Dates: start: 20040101
  2. PRILOSEC [Suspect]
  3. ADVIL [Suspect]
  4. AMBIEN [Suspect]
  5. BENADRYL [Suspect]
  6. IMODIUM [Suspect]
  7. NORVASC [Concomitant]
  8. FOLTIX [Concomitant]
  9. CENTRUM SILVER [Concomitant]
  10. CALCIUM [Concomitant]

REACTIONS (2)
  - CONTUSION [None]
  - PAIN IN EXTREMITY [None]
